FAERS Safety Report 13889937 (Version 2)
Quarter: 2017Q3

REPORT INFORMATION
  Report Type: Report from Study
  Country: US (occurrence: US)
  Receive Date: 20170822
  Receipt Date: 20170824
  Transmission Date: 20171127
  Serious: Yes (Other)
  Sender: FDA-Public Use
  Company Number: US-AUROBINDO-AUR-APL-2017-39012

PATIENT
  Sex: Female

DRUGS (2)
  1. LIDOCAINE. [Suspect]
     Active Substance: LIDOCAINE
     Indication: ATRIAL FIBRILLATION
  2. LIDOCAINE. [Suspect]
     Active Substance: LIDOCAINE
     Indication: CARDIAC FAILURE CONGESTIVE
     Dosage: 1 MG/MINUTE
     Route: 042

REACTIONS (4)
  - Urine output decreased [Unknown]
  - Blood creatinine increased [Unknown]
  - Blood urea increased [Unknown]
  - Drug level increased [Unknown]
